FAERS Safety Report 22825675 (Version 2)
Quarter: 2023Q4

REPORT INFORMATION
  Report Type: Spontaneous
  Country: NL (occurrence: NL)
  Receive Date: 20230816
  Receipt Date: 20231012
  Transmission Date: 20240109
  Serious: Yes (Other)
  Sender: FDA-Public Use
  Company Number: NL-002147023-NVSC2022NL140439

PATIENT
  Age: 33 Year
  Sex: Female

DRUGS (6)
  1. EZETIMIBE [Suspect]
     Active Substance: EZETIMIBE
     Indication: Type IIa hyperlipidaemia
     Dosage: 1 DOSAGE FORM, ONCE A DAY (1 DOSAGE FORM, QD (30 PIECES)
     Route: 048
  2. EZETIMIBE [Suspect]
     Active Substance: EZETIMIBE
     Dosage: 1 DOSAGE FORM, ONCE A DAY (1 DOSAGE FORM, QD (30 PIECES)
     Route: 048
  3. LEQVIO [Suspect]
     Active Substance: INCLISIRAN SODIUM
     Indication: Type IIa hyperlipidaemia
     Dosage: 1 DOSAGE FORM
     Route: 058
     Dates: start: 20220208
  4. LEQVIO [Suspect]
     Active Substance: INCLISIRAN SODIUM
     Dosage: 1 DOSAGE FORM EVERY 6 MONTHS (284MG/1.5ML) (189MG/ML) DISPOSABLE SYRINGE
     Route: 058
     Dates: start: 20221116
  5. LEQVIO [Suspect]
     Active Substance: INCLISIRAN SODIUM
     Dosage: UNK
     Route: 065
     Dates: start: 20230509
  6. LEQVIO [Suspect]
     Active Substance: INCLISIRAN SODIUM
     Dosage: 1 DOSAGE FORM, 1 DOSAGE FORM EVERY 6 MONTHS (284MG/1.5ML) (189MG/ML) DISPOSABLE SYRINGE
     Route: 058
     Dates: start: 20230525

REACTIONS (13)
  - Injection site pruritus [Not Recovered/Not Resolved]
  - Injection site pain [Not Recovered/Not Resolved]
  - Injection site vesicles [Not Recovered/Not Resolved]
  - Injection site rash [Not Recovered/Not Resolved]
  - Injection site erythema [Not Recovered/Not Resolved]
  - Scab [Not Recovered/Not Resolved]
  - Injection site nodule [Recovered/Resolved]
  - Injection site swelling [Recovered/Resolved]
  - Injection site hypersensitivity [Recovered/Resolved]
  - Blister rupture [Unknown]
  - Blister [Unknown]
  - Erythema [Unknown]
  - Pruritus [Recovered/Resolved]

NARRATIVE: CASE EVENT DATE: 20220615
